FAERS Safety Report 9967275 (Version 2)
Quarter: 2014Q1

REPORT INFORMATION
  Report Type: Report from Study
  Country: US (occurrence: US)
  Receive Date: 20140305
  Receipt Date: 20140305
  Transmission Date: 20141002
  Serious: No
  Sender: FDA-Public Use
  Company Number: US-ABBVIE-11P-163-0882633-00

PATIENT
  Age: 26 Year
  Sex: Female

DRUGS (7)
  1. HUMIRA 40 MG/0.8 ML PEN [Suspect]
     Indication: CROHN^S DISEASE
     Dates: start: 200909
  2. HUMIRA [Suspect]
     Indication: CROHN^S DISEASE
  3. LOMOTIL [Concomitant]
     Indication: DIARRHOEA
     Dates: end: 2012
  4. MULTIVITAMIN [Concomitant]
     Indication: PRODUCT USED FOR UNKNOWN INDICATION
  5. ALIGN PROBIOTIC [Concomitant]
     Indication: CROHN^S DISEASE
  6. PRENATAL VITAMINS [Concomitant]
     Indication: PRODUCT USED FOR UNKNOWN INDICATION
     Dates: start: 2012
  7. IMMODIUM [Concomitant]
     Indication: PRODUCT USED FOR UNKNOWN INDICATION
     Dates: start: 2012

REACTIONS (11)
  - Fistula [Unknown]
  - Injection site pain [Not Recovered/Not Resolved]
  - Crohn^s disease [Not Recovered/Not Resolved]
  - Pain [Unknown]
  - Anxiety [Unknown]
  - Injection site bruising [Unknown]
  - Injection site swelling [Unknown]
  - Pouchitis [Unknown]
  - Gastrointestinal inflammation [Unknown]
  - Urinary tract infection [Unknown]
  - Neuropathy peripheral [Unknown]
